FAERS Safety Report 18442219 (Version 4)
Quarter: 2021Q2

REPORT INFORMATION
  Report Type: Spontaneous
  Country: US (occurrence: US)
  Receive Date: 20201029
  Receipt Date: 20210605
  Transmission Date: 20210717
  Serious: No
  Sender: FDA-Public Use
  Company Number: US-SA-2020SA304647

PATIENT
  Age: 11 Year
  Sex: Male

DRUGS (1)
  1. DUPIXENT [Suspect]
     Active Substance: DUPILUMAB
     Indication: DERMATITIS ATOPIC
     Dosage: 200 MG, QOW
     Route: 058
     Dates: start: 20201006

REACTIONS (8)
  - Nasal discomfort [Unknown]
  - Condition aggravated [Unknown]
  - Conjunctivitis [Unknown]
  - Sneezing [Unknown]
  - Rhinalgia [Unknown]
  - Pruritus [Recovered/Resolved]
  - Product use issue [Unknown]
  - Ephelides [Unknown]

NARRATIVE: CASE EVENT DATE: 2020
